FAERS Safety Report 10395927 (Version 1)
Quarter: 2014Q3

REPORT INFORMATION
  Report Type: Spontaneous
  Country: DK (occurrence: CH)
  Receive Date: 20140820
  Receipt Date: 20140820
  Transmission Date: 20150326
  Serious: Yes (Other)
  Sender: FDA-Public Use
  Company Number: CH-FRI-1000070015

PATIENT
  Sex: Female

DRUGS (5)
  1. SEROQUEL [Suspect]
     Active Substance: QUETIAPINE FUMARATE
     Dosage: 200 MG
     Dates: start: 201310
  2. ABILIFY [Suspect]
     Active Substance: ARIPIPRAZOLE
     Dates: start: 2011, end: 201310
  3. ESCITALOPRAM [Suspect]
     Active Substance: ESCITALOPRAM OXALATE
     Dosage: 10 MG
     Dates: start: 2011
  4. TOPAMAX [Suspect]
     Active Substance: TOPIRAMATE
     Dosage: 100 MG
     Dates: start: 2011, end: 201310
  5. TEMESTA [Suspect]
     Active Substance: LORAZEPAM
     Dates: start: 2011

REACTIONS (2)
  - Pregnancy [Recovered/Resolved]
  - Gestational diabetes [Unknown]
